FAERS Safety Report 23285908 (Version 2)
Quarter: 2024Q1

REPORT INFORMATION
  Report Type: Report from Study
  Country: US (occurrence: US)
  Receive Date: 20231212
  Receipt Date: 20240125
  Transmission Date: 20240409
  Serious: No
  Sender: FDA-Public Use
  Company Number: US-ALXN-A202312063

PATIENT
  Age: 36 Year
  Sex: Female

DRUGS (1)
  1. SOLIRIS [Suspect]
     Active Substance: ECULIZUMAB
     Indication: Myasthenia gravis
     Dosage: UNK
     Route: 041
     Dates: start: 20230908

REACTIONS (2)
  - Bone pain [Unknown]
  - Arthralgia [Unknown]

NARRATIVE: CASE EVENT DATE: 20230908
